FAERS Safety Report 13796879 (Version 2)
Quarter: 2017Q4

REPORT INFORMATION
  Report Type: Report from Study
  Country: None (occurrence: US)
  Receive Date: 20170726
  Receipt Date: 20171006
  Transmission Date: 20180320
  Serious: Yes (Other)
  Sender: FDA-Public Use
  Company Number: US-ABBVIE-17P-163-2047299-00

PATIENT
  Sex: Female
  Weight: 90.8 kg

DRUGS (7)
  1. LUPRON DEPOT [Suspect]
     Active Substance: LEUPROLIDE ACETATE
     Route: 030
     Dates: start: 201705
  2. HUMAN GROWTH HORMONE [Concomitant]
     Active Substance: SOMATROPIN
     Indication: IN VITRO FERTILISATION
     Dates: start: 201502, end: 2015
  3. LUPRON DEPOT [Suspect]
     Active Substance: LEUPROLIDE ACETATE
     Indication: ENDOMETRIOSIS
     Route: 030
     Dates: start: 201411, end: 201501
  4. MENOPUR [Concomitant]
     Active Substance: FOLLITROPIN\LUTEINIZING HORMONE
     Indication: IN VITRO FERTILISATION
     Dates: start: 201502, end: 201502
  5. PROGESTERONE. [Concomitant]
     Active Substance: PROGESTERONE
     Dates: start: 2016, end: 2016
  6. FOLISTIM [Concomitant]
     Indication: IN VITRO FERTILISATION
     Dates: start: 201502, end: 201502
  7. PROGESTERONE. [Concomitant]
     Active Substance: PROGESTERONE
     Indication: IN VITRO FERTILISATION
     Dates: start: 201502, end: 201503

REACTIONS (9)
  - Hyperphagia [Unknown]
  - Abortion spontaneous [Unknown]
  - Failed in vitro fertilisation [Recovered/Resolved]
  - Depression [Unknown]
  - Weight increased [Not Recovered/Not Resolved]
  - Foetal death [Unknown]
  - Gene mutation identification test positive [Not Recovered/Not Resolved]
  - Natural killer cell count increased [Not Recovered/Not Resolved]
  - Exposure during pregnancy [Unknown]

NARRATIVE: CASE EVENT DATE: 2015
